FAERS Safety Report 5262935-X (Version None)
Quarter: 2007Q1

REPORT INFORMATION
  Report Type: 
  Country: None (occurrence: None)
  Receive Date: 20070312
  Receipt Date: 20070226
  Transmission Date: 20070707
  Serious: Yes (Hospitalization)
  Sender: FDA-Public Use
  Company Number: US-JNJFOC-20070302031

PATIENT
  Sex: Female

DRUGS (1)
  1. FLEXERIL [Suspect]
     Indication: BACK PAIN

REACTIONS (3)
  - DELIRIUM [None]
  - UNRESPONSIVE TO STIMULI [None]
  - URINARY TRACT INFECTION [None]
